FAERS Safety Report 23993047 (Version 1)
Quarter: 2024Q2

REPORT INFORMATION
  Report Type: Spontaneous
  Country: GB (occurrence: GB)
  Receive Date: 20240620
  Receipt Date: 20240620
  Transmission Date: 20240716
  Serious: Yes (Hospitalization, Other)
  Sender: FDA-Public Use
  Company Number: None

PATIENT
  Age: 87 Year
  Sex: Male
  Weight: 72 kg

DRUGS (2)
  1. BETAMETHASONE DIPROPIONATE\CLOTRIMAZOLE [Suspect]
     Active Substance: BETAMETHASONE DIPROPIONATE\CLOTRIMAZOLE
     Indication: Dry skin
     Dosage: 30G APPLY THINLY TWICE A DAY
  2. BETAMETHASONE [Suspect]
     Active Substance: BETAMETHASONE\BETAMETHASONE DIPROPIONATE
     Indication: Skin disorder
     Dosage: 1 DOSAGE FORM, Q12H

REACTIONS (6)
  - Cerebrovascular accident [Recovered/Resolved with Sequelae]
  - Deafness [Not Recovered/Not Resolved]
  - Gait disturbance [Unknown]
  - Tinnitus [Unknown]
  - Dizziness [Unknown]
  - Balance disorder [Unknown]
